FAERS Safety Report 8062287-6 (Version None)
Quarter: 2012Q1

REPORT INFORMATION
  Report Type: 
  Country: None (occurrence: None)
  Receive Date: 20120123
  Receipt Date: 20120118
  Transmission Date: 20120608
  Serious: No
  Sender: FDA-Public Use
  Company Number: US-PFIZER INC-2012016214

PATIENT
  Sex: Female
  Weight: 79.365 kg

DRUGS (4)
  1. ACTOPLUS MET [Concomitant]
     Indication: DIABETES MELLITUS
     Dosage: UNK
  2. SIMVASTATIN [Concomitant]
     Indication: BLOOD CHOLESTEROL ABNORMAL
     Dosage: UNK
  3. BENAZEPRIL HYDROCHLORIDE [Suspect]
     Indication: HYPERTENSION
     Dosage: 20 MG, DAILY
     Dates: start: 20111001, end: 20120101
  4. NORVASC [Suspect]
     Indication: HYPERTENSION
     Dosage: 5 MG, DAILY
     Dates: start: 20111001, end: 20120101

REACTIONS (1)
  - MUSCLE SWELLING [None]
